FAERS Safety Report 7248673-2 (Version None)
Quarter: 2011Q1

REPORT INFORMATION
  Report Type: 
  Country: None (occurrence: None)
  Receive Date: 20110128
  Receipt Date: 20110118
  Transmission Date: 20110831
  Serious: Yes (Other)
  Sender: FDA-Public Use
  Company Number: US-BIOGENIDEC-2011BI002389

PATIENT
  Age: 45 Year
  Sex: Female

DRUGS (1)
  1. TYSABRI [Suspect]
     Indication: MULTIPLE SCLEROSIS
     Route: 042
     Dates: start: 20091007

REACTIONS (7)
  - MASS [None]
  - FALL [None]
  - JOINT INJURY [None]
  - HEADACHE [None]
  - LACERATION [None]
  - CONVULSION [None]
  - ARTHRALGIA [None]
